FAERS Safety Report 7450602-3 (Version None)
Quarter: 2011Q2

REPORT INFORMATION
  Report Type: 
  Country: None (occurrence: None)
  Receive Date: 20110502
  Receipt Date: 20101109
  Transmission Date: 20111010
  Serious: Yes (Hospitalization, Other)
  Sender: FDA-Public Use
  Company Number: US-BAYER-201024692NA

PATIENT
  Age: 32 Year
  Sex: Female
  Weight: 71.655 kg

DRUGS (8)
  1. DIOVAN HCT [Concomitant]
     Dosage: UNK
     Dates: start: 20070810
  2. ZYRTEC [Concomitant]
     Dosage: 10 MG, UNK
     Dates: start: 20070326
  3. SINGULAIR [Concomitant]
     Dosage: 10 MG, UNK
     Dates: start: 20070326
  4. PLAVIX [Concomitant]
     Indication: CEREBROVASCULAR ACCIDENT
  5. LISINOPRIL AND HYDROCHLOROTHIAZIDE [Concomitant]
     Indication: HYPERTENSION
     Dosage: UNK
     Dates: start: 20070627, end: 20070701
  6. NICODERM [Concomitant]
  7. PREDNISONE [Concomitant]
     Dosage: 5 MG, UNK
     Dates: start: 20070326
  8. YASMIN [Suspect]
     Indication: CONTRACEPTION
     Dosage: UNK
     Route: 048
     Dates: start: 20060201, end: 20070629

REACTIONS (4)
  - VISION BLURRED [None]
  - CEREBROVASCULAR ACCIDENT [None]
  - EMOTIONAL DISTRESS [None]
  - VISUAL FIELD DEFECT [None]
